FAERS Safety Report 8219001-0 (Version None)
Quarter: 2012Q1

REPORT INFORMATION
  Report Type: 
  Country: None (occurrence: None)
  Receive Date: 20120319
  Receipt Date: 20120313
  Transmission Date: 20120608
  Serious: Yes (Hospitalization)
  Sender: FDA-Public Use
  Company Number: AT-MERCK-1203AUT00004

PATIENT
  Age: 64 Year
  Sex: Male
  Weight: 78 kg

DRUGS (11)
  1. JANUMET [Suspect]
     Route: 048
     Dates: start: 20110101, end: 20120220
  2. AMLODIPINE BESYLATE AND HYDROCHLOROTHIAZIDE AND VALSARTAN [Concomitant]
     Route: 065
  3. BISOPROLOL FUMARATE [Concomitant]
     Indication: HYPERTENSION
     Route: 048
  4. MOXONIDINE [Concomitant]
     Route: 048
  5. VALSARTAN [Concomitant]
     Route: 048
  6. CARVEDILOL [Concomitant]
     Indication: HYPERTENSION
     Route: 048
     Dates: start: 20100427
  7. CALCIUM PANTOTHENATE AND CYANOCOBALAMIN AND NIACINAMIDE AND PYRIDOXINE [Concomitant]
     Route: 048
  8. PANTOPRAZOLE SODIUM [Concomitant]
     Route: 048
  9. AMLODIPINE BESYLATE [Concomitant]
     Route: 048
  10. JANUMET [Suspect]
     Indication: TYPE 2 DIABETES MELLITUS
     Route: 048
     Dates: start: 20100401, end: 20110101
  11. JANUVIA [Suspect]
     Indication: TYPE 2 DIABETES MELLITUS
     Route: 048
     Dates: start: 20110101, end: 20111201

REACTIONS (10)
  - ASTHENIA [None]
  - BLOOD PRESSURE INCREASED [None]
  - DYSPNOEA EXERTIONAL [None]
  - EXTRASYSTOLES [None]
  - ATRIAL FIBRILLATION [None]
  - TACHYCARDIA [None]
  - NAUSEA [None]
  - ARRHYTHMIA SUPRAVENTRICULAR [None]
  - ERUCTATION [None]
  - FLATULENCE [None]
